FAERS Safety Report 17058051 (Version 1)
Quarter: 2019Q4

REPORT INFORMATION
  Report Type: Spontaneous
  Country: US (occurrence: US)
  Receive Date: 20191121
  Receipt Date: 20191121
  Transmission Date: 20200122
  Serious: No
  Sender: FDA-Public Use
  Company Number: None

PATIENT
  Age: 28 Year
  Sex: Female

DRUGS (1)
  1. GLATIRAMER [Suspect]
     Active Substance: GLATIRAMER
     Dosage: ?          OTHER FREQUENCY:THREE TIMES A WEEK;?
     Route: 058

REACTIONS (3)
  - Maternal exposure during pregnancy [None]
  - Pregnancy [None]
  - Abortion spontaneous [None]
